FAERS Safety Report 24997390 (Version 3)
Quarter: 2025Q1

REPORT INFORMATION
  Report Type: Spontaneous
  Country: JP (occurrence: JP)
  Receive Date: 20250222
  Receipt Date: 20250315
  Transmission Date: 20250409
  Serious: Yes (Death, Life-Threatening, Hospitalization, Other)
  Sender: ABBVIE
  Company Number: JP-TAKEDA-2025TJP001708

PATIENT
  Age: 85 Year
  Sex: Male
  Weight: 53 kg

DRUGS (8)
  1. LEUPLIN [Suspect]
     Active Substance: LEUPROLIDE ACETATE
     Indication: Prostate cancer
     Dosage: FORM STRENGTH:11.25 MILLIGRAM, Q3MONTHS, LEUPLIN SR FOR INJECTION KIT 11.25 MG
     Route: 058
     Dates: start: 20250115
  2. ATORVASTATIN CALCIUM [Concomitant]
     Active Substance: ATORVASTATIN CALCIUM
     Indication: Product used for unknown indication
     Route: 065
  3. ALLOPURINOL [Concomitant]
     Active Substance: ALLOPURINOL
     Indication: Product used for unknown indication
     Route: 065
  4. VOGLIBOSE [Concomitant]
     Active Substance: VOGLIBOSE
     Indication: Product used for unknown indication
     Route: 065
  5. TRAZODONE HYDROCHLORIDE [Concomitant]
     Active Substance: TRAZODONE HYDROCHLORIDE
     Indication: Product used for unknown indication
     Route: 065
  6. FOLIC ACID [Concomitant]
     Active Substance: FOLIC ACID
     Indication: Product used for unknown indication
     Route: 065
  7. DULOXETINE HYDROCHLORIDE [Concomitant]
     Active Substance: DULOXETINE HYDROCHLORIDE
     Indication: Product used for unknown indication
     Route: 065
  8. LATUDA [Concomitant]
     Active Substance: LURASIDONE HYDROCHLORIDE
     Indication: Product used for unknown indication
     Route: 065

REACTIONS (7)
  - Ileus [Fatal]
  - Pituitary apoplexy [Recovering/Resolving]
  - Jaundice [Unknown]
  - Secondary adrenocortical insufficiency [Unknown]
  - Hypothyroidism [Unknown]
  - Hyperbilirubinaemia [Recovering/Resolving]
  - Pneumonia aspiration [Fatal]

NARRATIVE: CASE EVENT DATE: 20250120
